FAERS Safety Report 4361073-8 (Version None)
Quarter: 2004Q2

REPORT INFORMATION
  Report Type: 
  Country: None (occurrence: None)
  Receive Date: 20040517
  Receipt Date: 20040512
  Transmission Date: 20050107
  Serious: Yes (Other)
  Sender: FDA-Public Use
  Company Number: 2004-05-0639

PATIENT
  Sex: Male

DRUGS (2)
  1. REBETOL [Suspect]
     Indication: HEPATITIS C
     Dosage: 600 MG ORAL
     Route: 048
     Dates: start: 20040501, end: 20040510
  2. INTRON A (INTERFERON ALFA-2B RECOMBINANT) INJECTABLE POWDER [Suspect]
     Dosage: 6MU INTRAMUSCULAR
     Route: 030
     Dates: start: 20040501, end: 20040510

REACTIONS (2)
  - CONVULSION [None]
  - DEPRESSED LEVEL OF CONSCIOUSNESS [None]
